FAERS Safety Report 4459819-3 (Version None)
Quarter: 2004Q3

REPORT INFORMATION
  Report Type: 
  Country: None (occurrence: None)
  Receive Date: 20040928
  Receipt Date: 20040206
  Transmission Date: 20050211
  Serious: No
  Sender: FDA-Public Use
  Company Number: US-BRISTOL-MYERS SQUIBB COMPANY-12498358

PATIENT
  Age: 57 Year
  Sex: Female
  Weight: 48 kg

DRUGS (4)
  1. TRIMOX [Suspect]
     Indication: INFECTION PROPHYLAXIS
     Route: 048
     Dates: start: 20040205
  2. XANAX [Concomitant]
  3. LEVOXYL [Concomitant]
  4. PREMARIN [Concomitant]

REACTIONS (4)
  - CHEST PAIN [None]
  - DYSPNOEA [None]
  - SWELLING FACE [None]
  - TONGUE DISCOLOURATION [None]
